FAERS Safety Report 25725813 (Version 1)
Quarter: 2025Q3

REPORT INFORMATION
  Report Type: Spontaneous
  Country: US (occurrence: None)
  Receive Date: 20250823
  Receipt Date: 20250823
  Transmission Date: 20251021
  Serious: Yes (Disabling, Other)
  Sender: FDA-CTU
  Company Number: None

PATIENT
  Age: 66 Year
  Sex: Female
  Weight: 94.95 kg

DRUGS (1)
  1. DOTAREM [Suspect]
     Active Substance: GADOTERATE MEGLUMINE
     Indication: Magnetic resonance imaging breast
     Dates: start: 20211020, end: 20211020

REACTIONS (9)
  - Documented hypersensitivity to administered product [None]
  - Headache [None]
  - Peripheral swelling [None]
  - Peripheral swelling [None]
  - Bone pain [None]
  - Hypertension [None]
  - Heart rate abnormal [None]
  - Tremor [None]
  - Wrong technique in product usage process [None]

NARRATIVE: CASE EVENT DATE: 20211020
